FAERS Safety Report 10356516 (Version 1)
Quarter: 2014Q3

REPORT INFORMATION
  Report Type: Spontaneous
  Country: US (occurrence: None)
  Receive Date: 20140730
  Receipt Date: 20140730
  Transmission Date: 20150326
  Serious: Yes (Other)
  Sender: FDA-Public Use
  Company Number: None

PATIENT
  Age: 2 Year
  Sex: Female

DRUGS (2)
  1. SYNAGIS [Concomitant]
     Active Substance: PALIVIZUMAB
  2. TOBRAMYCIN [Suspect]
     Active Substance: TOBRAMYCIN
     Indication: CYSTIC FIBROSIS
     Route: 055
     Dates: start: 20140207

REACTIONS (1)
  - Dizziness [None]

NARRATIVE: CASE EVENT DATE: 20140207
